FAERS Safety Report 17274158 (Version 1)
Quarter: 2020Q1

REPORT INFORMATION
  Report Type: Spontaneous
  Country: IT (occurrence: IT)
  Receive Date: 20200115
  Receipt Date: 20200115
  Transmission Date: 20200409
  Serious: Yes (Hospitalization)
  Sender: FDA-Public Use
  Company Number: IT-MYLANLABS-2020M1004172

PATIENT
  Age: 52 Year
  Sex: Female

DRUGS (2)
  1. ESCITALOPRAM [Suspect]
     Active Substance: ESCITALOPRAM OXALATE
     Indication: DEPRESSED MOOD
     Dosage: 25 GTT DROPS, TOTAL
     Route: 048
     Dates: start: 20191007, end: 20191007
  2. TRAMADOL. [Suspect]
     Active Substance: TRAMADOL
     Indication: DEPRESSED MOOD
     Dosage: 25 GTT DROPS, TOTAL
     Route: 048
     Dates: start: 20191007, end: 20191007

REACTIONS (1)
  - Toxicity to various agents [Recovering/Resolving]

NARRATIVE: CASE EVENT DATE: 20191007
